FAERS Safety Report 5818203-8 (Version None)
Quarter: 2008Q3

REPORT INFORMATION
  Report Type: 
  Country: None (occurrence: None)
  Receive Date: 20080722
  Receipt Date: 20080606
  Transmission Date: 20090109
  Serious: No
  Sender: FDA-Public Use
  Company Number: US-BAYER-200712657BCC

PATIENT
  Age: 65 Year
  Sex: Female
  Weight: 62 kg

DRUGS (6)
  1. ALEVE (CAPLET) [Suspect]
     Indication: MYALGIA
     Dosage: TOTAL DAILY DOSE: 1320 MG  UNIT DOSE: 220 MG
     Route: 048
     Dates: start: 20070101
  2. ALEVE (CAPLET) [Suspect]
     Dosage: UNIT DOSE: 220 MG
     Route: 048
     Dates: start: 20070101
  3. PREMPRO [Concomitant]
  4. VERAPAMIL [Concomitant]
     Indication: BLOOD PRESSURE INCREASED
  5. VITAMIN B COMPLEX CAP [Concomitant]
  6. GLUCOSAMINE CHONDROITIN [Concomitant]

REACTIONS (3)
  - CONSTIPATION [None]
  - COUGH [None]
  - HEART RATE IRREGULAR [None]
